APPROVED DRUG PRODUCT: CEFAZOLIN SODIUM
Active Ingredient: CEFAZOLIN SODIUM
Strength: EQ 1GM BASE/VIAL
Dosage Form/Route: INJECTABLE;INJECTION
Application: A063208 | Product #001
Applicant: STERI PHARMA LLC
Approved: Dec 27, 1991 | RLD: No | RS: No | Type: DISCN